FAERS Safety Report 24347144 (Version 1)
Quarter: 2024Q3

REPORT INFORMATION
  Report Type: Spontaneous
  Country: NL (occurrence: NL)
  Receive Date: 20240921
  Receipt Date: 20240921
  Transmission Date: 20241017
  Serious: Yes (Other)
  Sender: AMGEN
  Company Number: NL-AMGEN-NLDSP2024184021

PATIENT

DRUGS (4)
  1. FILGRASTIM [Suspect]
     Active Substance: FILGRASTIM
     Indication: Allogenic stem cell transplantation
     Dosage: 5 MICROGRAM/KILOGRAM, QD (5 UG/KG/DAY WAS STARTED ON DAY +5)
     Route: 065
  2. MYCOPHENOLIC ACID [Concomitant]
     Active Substance: MYCOPHENOLIC ACID
     Indication: Prophylaxis
     Dosage: 15 MILLIGRAM/KILOGRAM, TID, THREE TIMES PER DAY BETWEEN DAY +5 AND DAY + 28
     Route: 065
  3. TACROLIMUS [Concomitant]
     Active Substance: TACROLIMUS
     Indication: Prophylaxis
     Dosage: 0.04 MILLIGRAM/KILOGRAM, BID (STARTING ON DAY +5)
     Route: 065
  4. CYCLOPHOSPHAMIDE [Concomitant]
     Active Substance: CYCLOPHOSPHAMIDE
     Indication: Prophylaxis
     Dosage: 40 MILLIGRAM/KILOGRAM
     Route: 065

REACTIONS (3)
  - Organising pneumonia [Unknown]
  - Cytokine release syndrome [Unknown]
  - Pyrexia [Unknown]
